FAERS Safety Report 8090780-9 (Version None)
Quarter: 2012Q1

REPORT INFORMATION
  Report Type: 
  Country: None (occurrence: None)
  Receive Date: 20120131
  Receipt Date: 20120123
  Transmission Date: 20120608
  Serious: Yes (Hospitalization, Other)
  Sender: FDA-Public Use
  Company Number: US-BAYER-2011-006813

PATIENT
  Sex: Female
  Weight: 61 kg

DRUGS (2)
  1. ETHINYL ESTRADIOL AND NORETHINDRONE [Concomitant]
     Dosage: UNK
     Dates: start: 20080701
  2. YAZ [Suspect]
     Indication: ORAL CONTRACEPTION
     Dosage: UNK
     Route: 048
     Dates: start: 20070713, end: 20080701

REACTIONS (8)
  - PAIN [None]
  - PULMONARY EMBOLISM [None]
  - VARICOSE VEIN [None]
  - ANXIETY [None]
  - DEEP VEIN THROMBOSIS [None]
  - PSYCHOLOGICAL TRAUMA [None]
  - FEAR [None]
  - EMOTIONAL DISTRESS [None]
